FAERS Safety Report 5265372-7 (Version None)
Quarter: 2007Q1

REPORT INFORMATION
  Report Type: 
  Country: None (occurrence: None)
  Receive Date: 20070314
  Receipt Date: 20070302
  Transmission Date: 20070707
  Serious: Yes (Disabling)
  Sender: FDA-Public Use
  Company Number: NL-PFIZER INC-2007017187

PATIENT

DRUGS (3)
  1. LIPITOR [Suspect]
     Indication: BLOOD CHOLESTEROL INCREASED
     Route: 048
  2. LOPID [Suspect]
     Indication: BLOOD CHOLESTEROL INCREASED
     Route: 048
  3. SELEKTINE [Suspect]
     Indication: BLOOD CHOLESTEROL INCREASED
     Route: 048

REACTIONS (7)
  - ALOPECIA [None]
  - BONE PAIN [None]
  - FATIGUE [None]
  - MYALGIA [None]
  - RASH [None]
  - RESPIRATORY DISORDER [None]
  - VISUAL ACUITY REDUCED [None]
